FAERS Safety Report 20093433 (Version 1)
Quarter: 2021Q4

REPORT INFORMATION
  Report Type: Other
  Country: US (occurrence: None)
  Receive Date: 20211121
  Receipt Date: 20211121
  Transmission Date: 20220303
  Serious: Yes (Hospitalization)
  Sender: FDA-Public Use
  Company Number: US-Square-000036

PATIENT
  Age: 56 Year
  Sex: Male

DRUGS (12)
  1. ACYCLOVIR [Suspect]
     Active Substance: ACYCLOVIR
     Indication: Varicella zoster virus infection
     Dosage: 750 MG (10 MG/KG) THREE TIMES A DAY
     Route: 042
  2. AMPICILLIN [Concomitant]
     Active Substance: AMPICILLIN
     Indication: Evidence based treatment
     Dosage: 2 G SIX TIMES A DAY
  3. CEFTRIAXONE [Concomitant]
     Active Substance: CEFTRIAXONE
     Indication: Evidence based treatment
     Dosage: 2 G, TWO TIMES A DAY
  4. DOXYCYCLINE [Concomitant]
     Active Substance: DOXYCYCLINE
     Indication: Evidence based treatment
     Dosage: 100 MG TWO TIMES A DAY
  5. DEXAMETHASONE [Concomitant]
     Active Substance: DEXAMETHASONE
     Indication: Evidence based treatment
     Dosage: 11 MG FOUR TIMES A DAY
  6. VANCOMYCIN [Concomitant]
     Active Substance: VANCOMYCIN
     Indication: Evidence based treatment
     Dosage: 1.75 G ONCE A DAY
  7. BIKTARVY [Concomitant]
     Active Substance: BICTEGRAVIR SODIUM\EMTRICITABINE\TENOFOVIR ALAFENAMIDE FUMARATE
     Indication: Evidence based treatment
     Dosage: 50-200-25 MG ONCE A DAY
  8. CLOPIDOGREL [Concomitant]
     Active Substance: CLOPIDOGREL BISULFATE
     Indication: Cerebrovascular accident
  9. ATORVASTATIN [Concomitant]
     Active Substance: ATORVASTATIN
     Indication: Cerebrovascular accident
  10. AMLODIPINE [Concomitant]
     Active Substance: AMLODIPINE BESYLATE
     Indication: Hypertension
  11. ACYCLOVIR [Suspect]
     Active Substance: ACYCLOVIR
     Indication: Cauda equina syndrome
     Dosage: 750 MG (10 MG/KG) THREE TIMES A DAY
     Route: 042
  12. ACYCLOVIR [Suspect]
     Active Substance: ACYCLOVIR
     Indication: Viral myelitis
     Dosage: 750 MG (10 MG/KG) THREE TIMES A DAY
     Route: 042

REACTIONS (2)
  - Pyrexia [Recovered/Resolved]
  - Eosinophilia [Unknown]
